FAERS Safety Report 7308808-X (Version None)
Quarter: 2011Q1

REPORT INFORMATION
  Report Type: 
  Country: None (occurrence: None)
  Receive Date: 20110223
  Receipt Date: 20110217
  Transmission Date: 20110831
  Serious: Yes (Life-Threatening)
  Sender: FDA-Public Use
  Company Number: PHHY2011EC14167

PATIENT
  Sex: Female

DRUGS (5)
  1. ACLASTA [Suspect]
     Indication: OSTEOPOROSIS
     Dosage: UNK
     Route: 042
     Dates: start: 20090601
  2. GLUCOMICINA [Concomitant]
     Dosage: UNK
  3. NIMESULIDE [Concomitant]
     Dosage: UNK
  4. CALCIUM [Concomitant]
     Dosage: UNK
  5. DICLOFENAC [Concomitant]
     Dosage: UNK

REACTIONS (3)
  - CONDITION AGGRAVATED [None]
  - EPISTAXIS [None]
  - ARTHRALGIA [None]
